FAERS Safety Report 8601690-X (Version None)
Quarter: 2012Q3

REPORT INFORMATION
  Report Type: 
  Country: None (occurrence: None)
  Receive Date: 20120817
  Receipt Date: 20120229
  Transmission Date: 20120928
  Serious: No
  Sender: FDA-Public Use
  Company Number: US-BRISTOL-MYERS SQUIBB COMPANY-16354847

PATIENT
  Age: 41 Year
  Sex: Male

DRUGS (1)
  1. SPRYCEL [Suspect]
     Indication: CHRONIC MYELOID LEUKAEMIA
     Dosage: THEN DOSE DECRESED TO 70MG DAILY
     Route: 048
     Dates: start: 20110801

REACTIONS (9)
  - MALAISE [None]
  - FEELING OF BODY TEMPERATURE CHANGE [None]
  - PAIN [None]
  - PAIN IN EXTREMITY [None]
  - CHILLS [None]
  - MYALGIA [None]
  - HEART RATE INCREASED [None]
  - FEELING ABNORMAL [None]
  - NAUSEA [None]
